FAERS Safety Report 8010548 (Version 2)
Quarter: 2013Q1

REPORT INFORMATION
  Report Type: Report from Study
  Country: FR (occurrence: FR)
  Receive Date: 20110627
  Receipt Date: 20130304
  Transmission Date: 20140127
  Serious: Yes (Death, Life-Threatening, Hospitalization)
  Sender: FDA-Public Use
  Company Number: FR-JNJFOC-20110207474

PATIENT
  Age: 79 Year
  Sex: Male
  Weight: 55 kg

DRUGS (8)
  1. ABIRATERONE [Suspect]
     Route: 048
  2. ABIRATERONE [Suspect]
     Indication: PROSTATE CANCER
     Dosage: 4 TABLETS PER DAY
     Route: 048
     Dates: start: 20110115, end: 20110217
  3. LIPANTHYL [Concomitant]
     Indication: DYSLIPIDAEMIA
  4. INEXIUM [Concomitant]
     Indication: GASTROINTESTINAL DISORDER THERAPY
  5. ALDACTAZINE [Concomitant]
     Indication: BLOOD PRESSURE INCREASED
  6. TARDYFERON [Concomitant]
  7. PRIMPERAN [Concomitant]
     Indication: NAUSEA
  8. PREDNISOLONE [Concomitant]
     Indication: PROSTATE CANCER
     Route: 048

REACTIONS (3)
  - Disseminated intravascular coagulation [Unknown]
  - Ischaemic stroke [Unknown]
  - Rectal haemorrhage [Fatal]
